FAERS Safety Report 18175666 (Version 1)
Quarter: 2020Q3

REPORT INFORMATION
  Report Type: Spontaneous
  Country: US (occurrence: US)
  Receive Date: 20200820
  Receipt Date: 20200820
  Transmission Date: 20201103
  Serious: No
  Sender: FDA-Public Use
  Company Number: US-ELI_LILLY_AND_COMPANY-US202008007841

PATIENT
  Age: 11 Year
  Sex: Male

DRUGS (2)
  1. ATOMOXETINE HYDROCHLORIDE 10MG [Suspect]
     Active Substance: ATOMOXETINE HYDROCHLORIDE
     Dosage: UNK UNK, UNKNOWN (HIGHER DOSE)
     Route: 065
  2. ATOMOXETINE HYDROCHLORIDE 10MG [Suspect]
     Active Substance: ATOMOXETINE HYDROCHLORIDE
     Indication: ATTENTION DEFICIT HYPERACTIVITY DISORDER
     Dosage: UNK UNK, UNKNOWN (LOWER DOSE)
     Route: 065
     Dates: start: 201911

REACTIONS (5)
  - Heart rate irregular [Unknown]
  - Constipation [Unknown]
  - Abdominal discomfort [Unknown]
  - Urticaria [Unknown]
  - Nausea [Unknown]

NARRATIVE: CASE EVENT DATE: 201911
